FAERS Safety Report 19402870 (Version 2)
Quarter: 2021Q2

REPORT INFORMATION
  Report Type: Spontaneous
  Country: RU (occurrence: RU)
  Receive Date: 20210610
  Receipt Date: 20210617
  Transmission Date: 20210717
  Serious: Yes (Death, Other)
  Sender: FDA-Public Use
  Company Number: RU-INCYTE CORPORATION-2021IN005082

PATIENT

DRUGS (3)
  1. CYTOSAR [Concomitant]
     Active Substance: CYTARABINE
     Indication: PRODUCT USED FOR UNKNOWN INDICATION
     Dosage: 50 MG (TWO TIMES PER DAY ON DAY 1?5 OF 28 DAY CYCLE)
     Route: 065
     Dates: start: 20201231, end: 20210427
  2. ERYTHROPOIETIN [Concomitant]
     Active Substance: ERYTHROPOIETIN
     Indication: PRODUCT USED FOR UNKNOWN INDICATION
     Dosage: 40000 IU, QW (5 COURSES)
     Route: 065
  3. JAKAVI [Suspect]
     Active Substance: RUXOLITINIB
     Indication: PRIMARY MYELOFIBROSIS
     Dosage: 5 MG, BID
     Route: 065
     Dates: start: 20201231, end: 20210427

REACTIONS (5)
  - Fatigue [Unknown]
  - Cardiovascular insufficiency [Fatal]
  - Mallory-Weiss syndrome [Unknown]
  - Myeloblast percentage increased [Unknown]
  - Blast cell count increased [Unknown]

NARRATIVE: CASE EVENT DATE: 20210522
